FAERS Safety Report 21723384 (Version 1)
Quarter: 2022Q4

REPORT INFORMATION
  Report Type: Spontaneous
  Country: US (occurrence: US)
  Receive Date: 20221213
  Receipt Date: 20221213
  Transmission Date: 20230113
  Serious: Yes (Other)
  Sender: FDA-Public Use
  Company Number: US-MannKind Corporation-2022MK000412

PATIENT
  Age: 21 Year
  Sex: Male

DRUGS (1)
  1. AFREZZA [Suspect]
     Active Substance: INSULIN HUMAN
     Indication: Diabetes mellitus
     Dates: start: 202208

REACTIONS (4)
  - Haematemesis [Unknown]
  - Ketosis [Unknown]
  - Therapy interrupted [Unknown]
  - Blood glucose increased [Unknown]
